FAERS Safety Report 8976432 (Version 1)
Quarter: 2012Q4

REPORT INFORMATION
  Report Type: 
  Country: HR (occurrence: HR)
  Receive Date: 20121220
  Receipt Date: 20121220
  Transmission Date: 20130627
  Serious: Yes (Death)
  Sender: FDA-Public Use
  Company Number: HR-JNJFOC-20121201857

PATIENT
  Age: 28 Month
  Sex: Female

DRUGS (1)
  1. DUROGESIC [Suspect]
     Indication: PRODUCT USED FOR UNKNOWN INDICATION
     Route: 062

REACTIONS (4)
  - Intentional drug misuse [Fatal]
  - Toxicity to various agents [Fatal]
  - Drug administered at inappropriate site [Fatal]
  - Drug diversion [Fatal]
